FAERS Safety Report 23517481 (Version 1)
Quarter: 2024Q1

REPORT INFORMATION
  Report Type: 
  Country: None (occurrence: None)
  Receive Date: 20240213
  Receipt Date: 20240213
  Transmission Date: 20240410
  Serious: No
  Sender: FDA-Public Use
  Company Number: DZ-ROCHE-3490955

PATIENT

DRUGS (4)
  1. PERJETA [Suspect]
     Active Substance: PERTUZUMAB
     Dosage: MAINTENANCE DOSE
     Dates: start: 20231128
  2. PERJETA [Suspect]
     Active Substance: PERTUZUMAB
     Dosage: FIRST COURSE LOADING DOSE
     Dates: start: 20231128
  3. DOCETAXEL [Concomitant]
     Active Substance: DOCETAXEL\DOCETAXEL ANHYDROUS
  4. TRASTUZUMAB [Concomitant]
     Active Substance: TRASTUZUMAB

REACTIONS (3)
  - Anaphylactic shock [None]
  - Chest discomfort [None]
  - Laryngeal oedema [None]

NARRATIVE: CASE EVENT DATE: 20231219
